FAERS Safety Report 7506112-8 (Version None)
Quarter: 2011Q2

REPORT INFORMATION
  Report Type: 
  Country: None (occurrence: None)
  Receive Date: 20110526
  Receipt Date: 20110518
  Transmission Date: 20111010
  Serious: Yes (Death)
  Sender: FDA-Public Use
  Company Number: DK-PFIZER INC-2011109969

PATIENT

DRUGS (4)
  1. CITALOPRAM [Concomitant]
  2. OXAZEPAM [Concomitant]
  3. VENLAFAXINE [Concomitant]
  4. AMLODIPINE BESYLATE [Suspect]

REACTIONS (1)
  - OVERDOSE [None]
